FAERS Safety Report 4834423-3 (Version None)
Quarter: 2005Q4

REPORT INFORMATION
  Report Type: 
  Country: None (occurrence: None)
  Receive Date: 20051115
  Receipt Date: 20051104
  Transmission Date: 20060501
  Serious: Yes (Hospitalization)
  Sender: FDA-Public Use
  Company Number: 2005US-01050

PATIENT
  Sex: Female

DRUGS (1)
  1. CEFACLOR [Suspect]
     Indication: CYSTITIS HAEMORRHAGIC
     Dosage: ORAL
     Route: 048

REACTIONS (2)
  - ACUTE GENERALISED EXANTHEMATOUS PUSTULOSIS [None]
  - WOUND INFECTION STAPHYLOCOCCAL [None]
